FAERS Safety Report 20063349 (Version 1)
Quarter: 2021Q4

REPORT INFORMATION
  Report Type: Spontaneous
  Country: US (occurrence: US)
  Receive Date: 20211112
  Receipt Date: 20211112
  Transmission Date: 20220303
  Serious: Yes (Death, Other)
  Sender: FDA-Public Use
  Company Number: US-AMNEAL PHARMACEUTICALS-2021-AMRX-04595

PATIENT
  Age: 32 Year
  Sex: Male

DRUGS (1)
  1. COLCHICINE [Suspect]
     Active Substance: COLCHICINE
     Indication: Product used for unknown indication
     Dosage: 32.4MG (0.39MG/KG) AND 5.4MG (0.65MG/KG)
     Route: 048

REACTIONS (12)
  - Lactic acidosis [Unknown]
  - Hyperkalaemia [Unknown]
  - Hyperphosphataemia [Unknown]
  - Hypocalcaemia [Unknown]
  - Hypomagnesaemia [Unknown]
  - Hypoglycaemia [Unknown]
  - Multiple organ dysfunction syndrome [Unknown]
  - Pancytopenia [Unknown]
  - Rhabdomyolysis [Unknown]
  - Disseminated intravascular coagulation [Unknown]
  - Toxicity to various agents [Unknown]
  - Intentional overdose [Fatal]
